FAERS Safety Report 17416331 (Version 1)
Quarter: 2020Q1

REPORT INFORMATION
  Report Type: Spontaneous
  Country: US (occurrence: US)
  Receive Date: 20200130
  Receipt Date: 20200130
  Transmission Date: 20200409
  Serious: Yes (Hospitalization)
  Sender: FDA-Public Use
  Company Number: None

PATIENT
  Age: 23 Year
  Sex: Female

DRUGS (1)
  1. STELARA [Suspect]
     Active Substance: USTEKINUMAB
     Indication: CROHN^S DISEASE
     Dates: start: 20190613

REACTIONS (6)
  - Therapy cessation [None]
  - Abdominal pain [None]
  - Loss of personal independence in daily activities [None]
  - Diarrhoea [None]
  - Condition aggravated [None]
  - Fatigue [None]

NARRATIVE: CASE EVENT DATE: 20200129
